FAERS Safety Report 6543772-2 (Version None)
Quarter: 2010Q1

REPORT INFORMATION
  Report Type: 
  Country: None (occurrence: None)
  Receive Date: 20100120
  Receipt Date: 20091120
  Transmission Date: 20100710
  Serious: No
  Sender: FDA-Public Use
  Company Number: US-BRISTOL-MYERS SQUIBB COMPANY-14866917

PATIENT
  Age: 50 Year
  Sex: Male
  Weight: 109 kg

DRUGS (3)
  1. ABILIFY [Suspect]
     Indication: MAJOR DEPRESSION
  2. TRAZODONE HCL [Suspect]
     Indication: MAJOR DEPRESSION
  3. CELEXA [Suspect]
     Indication: MAJOR DEPRESSION

REACTIONS (1)
  - SOMNOLENCE [None]
